FAERS Safety Report 25485266 (Version 1)
Quarter: 2025Q2

REPORT INFORMATION
  Report Type: Spontaneous
  Country: MX (occurrence: MX)
  Receive Date: 20250626
  Receipt Date: 20250626
  Transmission Date: 20250716
  Serious: Yes (Other)
  Sender: ELI LILLY AND COMPANY
  Company Number: MX-ELI_LILLY_AND_COMPANY-MX202506019500

PATIENT
  Sex: Female

DRUGS (2)
  1. FORTEO [Suspect]
     Active Substance: TERIPARATIDE
     Indication: Osteoporosis
     Dosage: UNK, DAILY
     Route: 065
     Dates: start: 202303
  2. FORTEO [Suspect]
     Active Substance: TERIPARATIDE
     Indication: Femur fracture

REACTIONS (2)
  - Neoplasm malignant [Recovered/Resolved]
  - Product dose omission in error [Unknown]

NARRATIVE: CASE EVENT DATE: 20230701
